FAERS Safety Report 7106301-0 (Version None)
Quarter: 2010Q4

REPORT INFORMATION
  Report Type: 
  Country: None (occurrence: None)
  Receive Date: 20101018
  Receipt Date: 20100402
  Transmission Date: 20110411
  Serious: Yes (Other)
  Sender: FDA-Public Use
  Company Number: HQWYE700511OCT04

PATIENT
  Age: 72 Year
  Sex: Female

DRUGS (5)
  1. PREMARIN [Suspect]
     Indication: MENOPAUSAL SYMPTOMS
     Dosage: ORAL
     Route: 048
     Dates: start: 19800101, end: 20020101
  2. ESTROPIPATE [Suspect]
  3. OGEN [Suspect]
     Dosage: ORAL
     Route: 048
  4. PREMPRO [Suspect]
  5. PROVERA [Suspect]
     Indication: MENOPAUSAL SYMPTOMS
     Dosage: ORAL
     Route: 048

REACTIONS (4)
  - BREAST CANCER [None]
  - CONSTIPATION [None]
  - DEPRESSION [None]
  - FATIGUE [None]
